FAERS Safety Report 9158127 (Version 2)
Quarter: 2013Q1

REPORT INFORMATION
  Report Type: Spontaneous
  Country: DE (occurrence: DE)
  Receive Date: 20130312
  Receipt Date: 20130313
  Transmission Date: 20140127
  Serious: Yes (Other)
  Sender: FDA-Public Use
  Company Number: DE-GLAXOSMITHKLINE-D0079056A

PATIENT
  Age: 47 Year
  Sex: Female

DRUGS (1)
  1. REVOLADE [Suspect]
     Route: 048

REACTIONS (2)
  - Polyarthritis [Unknown]
  - Osteoarthritis [Unknown]
